FAERS Safety Report 7035467-6 (Version None)
Quarter: 2010Q4

REPORT INFORMATION
  Report Type: 
  Country: None (occurrence: None)
  Receive Date: 20101008
  Receipt Date: 20100928
  Transmission Date: 20110411
  Serious: Yes (Other)
  Sender: FDA-Public Use
  Company Number: US-PFIZER INC-2010123156

PATIENT
  Sex: Female

DRUGS (4)
  1. LIPITOR [Suspect]
     Indication: LOW DENSITY LIPOPROTEIN INCREASED
     Dosage: 10 MG, 1X/DAY
     Route: 048
     Dates: start: 20010501
  2. LIPITOR [Suspect]
     Indication: CARDIAC DISORDER
  3. ATENOLOL [Concomitant]
     Indication: HYPERTENSION
     Dosage: 100MG, UNK
  4. MICARDIS [Concomitant]
     Indication: HYPERTENSION
     Dosage: 80MG, UNK

REACTIONS (2)
  - BRONCHIECTASIS [None]
  - COUGH [None]
